FAERS Safety Report 8392751-1 (Version None)
Quarter: 2012Q2

REPORT INFORMATION
  Report Type: 
  Country: None (occurrence: None)
  Receive Date: 20120529
  Receipt Date: 20110603
  Transmission Date: 20120825
  Serious: No
  Sender: FDA-Public Use
  Company Number: US-MYLANLABS-2011S1011648

PATIENT
  Sex: Female
  Weight: 61.24 kg

DRUGS (3)
  1. AMITRIPTYLINE HCL [Suspect]
     Indication: FIBROMYALGIA
     Route: 048
  2. AMITRIPTYLINE HCL [Suspect]
     Indication: SLEEP DISORDER
     Route: 048
  3. SINGULAIR [Concomitant]
     Route: 048

REACTIONS (1)
  - OESOPHAGEAL DISORDER [None]
